FAERS Safety Report 4401134-8 (Version None)
Quarter: 2004Q3

REPORT INFORMATION
  Report Type: 
  Country: None (occurrence: None)
  Receive Date: 20040907
  Receipt Date: 20031112
  Transmission Date: 20050211
  Serious: No
  Sender: FDA-Public Use
  Company Number: US-BRISTOL-MYERS SQUIBB COMPANY-12433751

PATIENT
  Age: 78 Year
  Sex: Female
  Weight: 70 kg

DRUGS (6)
  1. COUMADIN [Suspect]
     Indication: ATRIAL FIBRILLATION
     Dosage: STARTED ON 2.5MG QD; 11/11/03:INCREASED TO 5MG QD.
     Route: 048
     Dates: start: 20031106
  2. CAPTOPRIL [Concomitant]
  3. ESTRADIOL [Concomitant]
  4. MULTI-VITAMIN [Concomitant]
  5. VITAMIN E [Concomitant]
  6. CALCIUM [Concomitant]

REACTIONS (1)
  - INSOMNIA [None]
